FAERS Safety Report 5757184-2 (Version None)
Quarter: 2008Q2

REPORT INFORMATION
  Report Type: 
  Country: None (occurrence: None)
  Receive Date: 20080603
  Receipt Date: 20080523
  Transmission Date: 20081010
  Serious: Yes (Other)
  Sender: FDA-Public Use
  Company Number: US-JNJFOC-20080505856

PATIENT
  Sex: Female
  Weight: 69.4 kg

DRUGS (6)
  1. ULTRAM ER [Suspect]
     Indication: SPINAL COLUMN STENOSIS
     Route: 048
  2. SYNTHROID [Concomitant]
     Indication: HYPOTHYROIDISM
     Route: 048
  3. NASONEX [Concomitant]
     Indication: MULTIPLE ALLERGIES
     Route: 045
  4. ZYRTEC [Concomitant]
     Indication: MULTIPLE ALLERGIES
     Route: 048
  5. TENORECTIC [Concomitant]
     Indication: HYPERTENSION
     Route: 048
  6. PREMARIN [Concomitant]
     Indication: HORMONE REPLACEMENT THERAPY
     Route: 048

REACTIONS (6)
  - ANOREXIA [None]
  - CONSTIPATION [None]
  - GASTRIC ULCER [None]
  - HIATUS HERNIA [None]
  - NAUSEA [None]
  - WEIGHT DECREASED [None]
